FAERS Safety Report 11805275 (Version 1)
Quarter: 2015Q4

REPORT INFORMATION
  Report Type: Other
  Country: GB (occurrence: GB)
  Receive Date: 20151206
  Receipt Date: 20151206
  Transmission Date: 20160305
  Serious: Yes (Life-Threatening, Hospitalization, Disabling)
  Sender: FDA-Public Use
  Company Number: GB-MYLANLABS-2015M1041643

PATIENT

DRUGS (1)
  1. OLANZAPINE. [Suspect]
     Active Substance: OLANZAPINE
     Indication: DEPRESSION
     Dosage: UNK
     Route: 064

REACTIONS (3)
  - Exposure during pregnancy [Unknown]
  - Gastroschisis [Not Recovered/Not Resolved]
  - Congenital hand malformation [Not Recovered/Not Resolved]

NARRATIVE: CASE EVENT DATE: 20150815
